FAERS Safety Report 4849144-0 (Version None)
Quarter: 2005Q4

REPORT INFORMATION
  Report Type: 
  Country: None (occurrence: None)
  Receive Date: 20051209
  Receipt Date: 20051104
  Transmission Date: 20060501
  Serious: Yes (Hospitalization)
  Sender: FDA-Public Use
  Company Number: US-MERCK-0511USA00806

PATIENT
  Age: 52 Year
  Sex: Male

DRUGS (6)
  1. VIOXX [Suspect]
     Indication: PAIN
     Route: 048
     Dates: start: 19990101, end: 20040930
  2. CLONOPIN [Concomitant]
     Route: 065
  3. PREDNISONE [Concomitant]
     Route: 065
  4. PROTONIX [Concomitant]
     Route: 065
  5. FOSAMAX [Concomitant]
     Route: 048
  6. OXYCONTIN [Concomitant]
     Route: 065

REACTIONS (4)
  - BONE FORMATION DECREASED [None]
  - LOWER LIMB FRACTURE [None]
  - LUMBAR VERTEBRAL FRACTURE [None]
  - SPINAL COMPRESSION FRACTURE [None]
